FAERS Safety Report 11783500 (Version 1)
Quarter: 2015Q4

REPORT INFORMATION
  Report Type: Spontaneous
  Country: FR (occurrence: FR)
  Receive Date: 20151127
  Receipt Date: 20151127
  Transmission Date: 20160305
  Serious: Yes (Death, Hospitalization, Other)
  Sender: FDA-Public Use
  Company Number: FR-UCBSA-2015037452

PATIENT
  Age: 74 Year
  Sex: Female

DRUGS (4)
  1. DACLATASVIR. [Concomitant]
     Active Substance: DACLATASVIR
     Indication: HEPATIC CIRRHOSIS
     Dosage: UNK
     Dates: end: 20141116
  2. KEPPRA [Suspect]
     Active Substance: LEVETIRACETAM
     Indication: EPILEPSY
     Dosage: 500 MG, 2X/DAY (BID)
     Route: 048
     Dates: start: 2011, end: 20150126
  3. KEPPRA [Suspect]
     Active Substance: LEVETIRACETAM
     Dosage: 250 MG, 2X/DAY (BID)
     Route: 048
     Dates: start: 201501
  4. DACLATASVIR. [Concomitant]
     Active Substance: DACLATASVIR
     Indication: PORTAL VEIN THROMBOSIS

REACTIONS (3)
  - Hepatic encephalopathy [Recovering/Resolving]
  - Drug level increased [Unknown]
  - Completed suicide [Fatal]

NARRATIVE: CASE EVENT DATE: 20141210
